FAERS Safety Report 10339831 (Version 1)
Quarter: 2014Q3

REPORT INFORMATION
  Report Type: Spontaneous
  Country: US (occurrence: None)
  Receive Date: 20140723
  Receipt Date: 20140723
  Transmission Date: 20150326
  Serious: Yes (Hospitalization)
  Sender: FDA-Public Use
  Company Number: None

PATIENT
  Age: 7 Year
  Sex: Female
  Weight: 24.95 kg

DRUGS (1)
  1. LAMICTAL [Suspect]
     Active Substance: LAMOTRIGINE
     Indication: ABNORMAL BEHAVIOUR
     Dosage: 1 PILL ONCE DAILY TAKEN UNDER THE TONGUE
     Dates: start: 20140521, end: 20140717

REACTIONS (5)
  - Lip swelling [None]
  - Eye irritation [None]
  - Genital rash [None]
  - Pharyngitis streptococcal [None]
  - Stevens-Johnson syndrome [None]

NARRATIVE: CASE EVENT DATE: 20140719
